FAERS Safety Report 11257186 (Version 1)
Quarter: 2015Q3

REPORT INFORMATION
  Report Type: Spontaneous
  Country: US (occurrence: US)
  Receive Date: 20150709
  Receipt Date: 20150709
  Transmission Date: 20151125
  Serious: No
  Sender: FDA-Public Use
  Company Number: US-PURDUE-USA-2014-0116183

PATIENT
  Sex: Female

DRUGS (3)
  1. BUTRANS [Suspect]
     Active Substance: BUPRENORPHINE
     Indication: PAIN IN EXTREMITY
     Dosage: 15 MCG/HR, UNK
     Route: 062
  2. BUTRANS [Suspect]
     Active Substance: BUPRENORPHINE
     Indication: MUSCLE SPASMS
     Dosage: 10 MCG/HR, WEEKLY
     Route: 062
     Dates: start: 2014
  3. BUTRANS [Suspect]
     Active Substance: BUPRENORPHINE
     Dosage: 5 MCG/HR, UNK
     Route: 062

REACTIONS (5)
  - Pain [Unknown]
  - Drug administered at inappropriate site [Unknown]
  - Hyperhidrosis [Unknown]
  - Product lot number issue [Unknown]
  - Product adhesion issue [Unknown]
